FAERS Safety Report 19454953 (Version 6)
Quarter: 2025Q2

REPORT INFORMATION
  Report Type: Spontaneous
  Country: CA (occurrence: CA)
  Receive Date: 20210623
  Receipt Date: 20250501
  Transmission Date: 20250717
  Serious: Yes (Life-Threatening, Hospitalization, Other)
  Sender: ANI
  Company Number: CA-ANIPHARMA-2021-CA-000905

PATIENT
  Age: 65 Year
  Sex: Female
  Weight: 69 kg

DRUGS (71)
  1. CANDESARTAN CILEXETIL [Suspect]
     Active Substance: CANDESARTAN CILEXETIL
     Indication: Hypertension
     Route: 048
  2. COSENTYX [Suspect]
     Active Substance: SECUKINUMAB
     Route: 065
  3. ERGOCALCIFEROL [Suspect]
     Active Substance: ERGOCALCIFEROL
     Route: 065
  4. IRBESARTAN [Suspect]
     Active Substance: IRBESARTAN
     Route: 048
  5. JANUVIA [Suspect]
     Active Substance: SITAGLIPTIN PHOSPHATE
     Route: 048
  6. LIPITOR [Suspect]
     Active Substance: ATORVASTATIN CALCIUM
     Route: 048
  7. METFORMIN [Suspect]
     Active Substance: METFORMIN HYDROCHLORIDE
     Route: 048
  8. METHOTREXATE [Suspect]
     Active Substance: METHOTREXATE
     Route: 065
  9. ASPIRIN [Concomitant]
     Active Substance: ASPIRIN
     Route: 065
  10. IRBESARTAN [Suspect]
     Active Substance: IRBESARTAN
     Route: 048
  11. COAL TAR [Concomitant]
     Active Substance: COAL TAR
     Route: 065
  12. ALISKIREN [Suspect]
     Active Substance: ALISKIREN
     Route: 048
  13. CYMBALTA [Concomitant]
     Active Substance: DULOXETINE HYDROCHLORIDE
     Route: 065
  14. DOVONEX [Concomitant]
     Active Substance: CALCIPOTRIENE
     Route: 065
  15. ROSUVASTATIN CALCIUM [Concomitant]
     Active Substance: ROSUVASTATIN CALCIUM
     Route: 065
  16. STELARA [Concomitant]
     Active Substance: USTEKINUMAB
     Route: 058
  17. SYNTHROID [Suspect]
     Active Substance: LEVOTHYROXINE SODIUM
     Route: 065
  18. ZOLPIDEM [Suspect]
     Active Substance: ZOLPIDEM TARTRATE
     Route: 065
  19. ACITRETIN [Concomitant]
     Active Substance: ACITRETIN
     Route: 065
  20. ASPIRIN [Suspect]
     Active Substance: ASPIRIN
  21. LISINOPRIL [Suspect]
     Active Substance: LISINOPRIL
     Route: 048
  22. ESOMEPRAZOLE MAGNESIUM [Suspect]
     Active Substance: ESOMEPRAZOLE MAGNESIUM
     Route: 048
  23. MORPHINE SULFATE [Suspect]
     Active Substance: MORPHINE SULFATE
     Route: 030
  24. RITUXIMAB [Suspect]
     Active Substance: RITUXIMAB
     Route: 042
  25. ALTACE [Suspect]
     Active Substance: RAMIPRIL
     Route: 048
  26. ACETAMINOPHEN [Suspect]
     Active Substance: ACETAMINOPHEN
     Route: 048
  27. GLICLAZIDE [Suspect]
     Active Substance: GLICLAZIDE
  28. GLICLAZIDE [Suspect]
     Active Substance: GLICLAZIDE
  29. AMEVIVE [Concomitant]
     Active Substance: ALEFACEPT
  30. PREDNISONE [Suspect]
     Active Substance: PREDNISONE
  31. ESOMEPRAZOLE MAGNESIUM\NAPROXEN [Suspect]
     Active Substance: ESOMEPRAZOLE MAGNESIUM\NAPROXEN
     Route: 048
  32. DIPHENHYDRAMINE HYDROCHLORIDE [Suspect]
     Active Substance: DIPHENHYDRAMINE HYDROCHLORIDE
     Route: 048
  33. LEVOTHYROXINE SODIUM [Suspect]
     Active Substance: LEVOTHYROXINE SODIUM
  34. GRAVOL [Suspect]
     Active Substance: DIMENHYDRINATE
  35. PROCHLORPERAZINE [Suspect]
     Active Substance: PROCHLORPERAZINE
  36. ESOMEPRAZOLE [Suspect]
     Active Substance: ESOMEPRAZOLE
  37. ZOLPIDEM TARTRATE [Suspect]
     Active Substance: ZOLPIDEM TARTRATE
  38. CYANOCOBALAMIN [Concomitant]
     Active Substance: CYANOCOBALAMIN
  39. ALISKIREN HEMIFUMARATE [Suspect]
     Active Substance: ALISKIREN HEMIFUMARATE
     Route: 048
  40. DEPO-MEDROL [Concomitant]
     Active Substance: METHYLPREDNISOLONE ACETATE
  41. DOMPERIDONE [Concomitant]
     Active Substance: DOMPERIDONE
  42. LEVOTHYROXINE [Concomitant]
     Active Substance: LEVOTHYROXINE
  43. EZETIMIBE [Concomitant]
     Active Substance: EZETIMIBE
  44. GLUCOPHAGE [Concomitant]
     Active Substance: METFORMIN HYDROCHLORIDE
  45. LANTUS [Concomitant]
     Active Substance: INSULIN GLARGINE
  46. HUMALOG [Concomitant]
     Active Substance: INSULIN LISPRO
  47. HYDROCHLOROTHIAZIDE [Concomitant]
     Active Substance: HYDROCHLOROTHIAZIDE
  48. LEVEMIR [Concomitant]
     Active Substance: INSULIN DETEMIR
  49. LYRICA [Concomitant]
     Active Substance: PREGABALIN
  50. PANTOPRAZOLE [Concomitant]
     Active Substance: PANTOPRAZOLE
  51. TELMISARTAN [Concomitant]
     Active Substance: TELMISARTAN
  52. TYLENOL [Concomitant]
     Active Substance: ACETAMINOPHEN
  53. ONDANSETRON [Suspect]
     Active Substance: ONDANSETRON
  54. METHYLPREDNISOLONE SODIUM SUCCINATE [Suspect]
     Active Substance: METHYLPREDNISOLONE SODIUM SUCCINATE
  55. NEXIUM [Suspect]
     Active Substance: ESOMEPRAZOLE MAGNESIUM
  56. TUMS ULTRA [Suspect]
     Active Substance: CALCIUM CARBONATE
  57. AMLODIPINE [Suspect]
     Active Substance: AMLODIPINE BESYLATE
     Route: 048
  58. NAPROXEN [Suspect]
     Active Substance: NAPROXEN
  59. AVAPRO [Concomitant]
     Active Substance: IRBESARTAN
  60. ASCORBIC ACID [Concomitant]
     Active Substance: ASCORBIC ACID
  61. ASCORBIC ACID\ASPIRIN [Concomitant]
     Active Substance: ASCORBIC ACID\ASPIRIN
  62. AMLODIPINE BESYLATE [Concomitant]
     Active Substance: AMLODIPINE BESYLATE
  63. PANTOPRAZOLE MAGNESIUM [Concomitant]
     Active Substance: PANTOPRAZOLE MAGNESIUM
  64. AMLODIPINE [Suspect]
     Active Substance: AMLODIPINE BESYLATE
  65. BISOPROLOL FUMARATE [Suspect]
     Active Substance: BISOPROLOL FUMARATE
     Route: 065
  66. PREDNISONE [Suspect]
     Active Substance: PREDNISONE
  67. MORPHINE SULFATE [Suspect]
     Active Substance: MORPHINE SULFATE
  68. ESOMEPRAZOLE MAGNESIUM [Suspect]
     Active Substance: ESOMEPRAZOLE MAGNESIUM
  69. ZESTRIL [Suspect]
     Active Substance: LISINOPRIL
  70. ZOLPIDEM [Concomitant]
     Active Substance: ZOLPIDEM TARTRATE
  71. CALCIUM CARBONATE [Suspect]
     Active Substance: CALCIUM CARBONATE
     Route: 065

REACTIONS (53)
  - Influenza like illness [Not Recovered/Not Resolved]
  - Confusional state [Recovered/Resolved]
  - Coordination abnormal [Recovered/Resolved]
  - Cystitis [Not Recovered/Not Resolved]
  - Dysarthria [Recovered/Resolved]
  - Dysphagia [Recovered/Resolved]
  - Eating disorder [Recovered/Resolved]
  - Fall [Recovered/Resolved]
  - Fatigue [Not Recovered/Not Resolved]
  - Headache [Not Recovered/Not Resolved]
  - Hemiparesis [Recovered/Resolved]
  - Hemiplegia [Recovered/Resolved]
  - Influenza [Not Recovered/Not Resolved]
  - Malaise [Not Recovered/Not Resolved]
  - Motor dysfunction [Recovered/Resolved]
  - Muscle spasticity [Recovered/Resolved]
  - Muscular weakness [Recovered/Resolved]
  - Nasopharyngitis [Not Recovered/Not Resolved]
  - Nausea [Recovered/Resolved]
  - Neurologic neglect syndrome [Recovered/Resolved]
  - Pain [Not Recovered/Not Resolved]
  - Adjustment disorder [Recovered/Resolved]
  - Personality disorder [Recovered/Resolved]
  - Pneumonia [Not Recovered/Not Resolved]
  - Psoriasis [Not Recovered/Not Resolved]
  - Pyrexia [Not Recovered/Not Resolved]
  - Respiratory tract congestion [Not Recovered/Not Resolved]
  - Rhinorrhoea [Not Recovered/Not Resolved]
  - Sensory loss [Recovered/Resolved]
  - Sinus congestion [Not Recovered/Not Resolved]
  - Sinus disorder [Not Recovered/Not Resolved]
  - Skin exfoliation [Not Recovered/Not Resolved]
  - Affect lability [Recovered/Resolved]
  - Skin haemorrhage [Not Recovered/Not Resolved]
  - Sneezing [Not Recovered/Not Resolved]
  - Vomiting [Not Recovered/Not Resolved]
  - Cataract [Not Recovered/Not Resolved]
  - Chest discomfort [Not Recovered/Not Resolved]
  - Cough [Not Recovered/Not Resolved]
  - Gangrene [Not Recovered/Not Resolved]
  - Gastrointestinal disorder [Not Recovered/Not Resolved]
  - Rheumatoid arthritis [Not Recovered/Not Resolved]
  - Sinusitis [Not Recovered/Not Resolved]
  - Anxiety [Recovered/Resolved]
  - Arterial occlusive disease [Not Recovered/Not Resolved]
  - Arthritis [Not Recovered/Not Resolved]
  - Angina pectoris [Not Recovered/Not Resolved]
  - Blood pressure increased [Not Recovered/Not Resolved]
  - Palpitations [Not Recovered/Not Resolved]
  - Aphasia [Not Recovered/Not Resolved]
  - Asthenia [Recovered/Resolved]
  - Carotid artery thrombosis [Recovered/Resolved]
  - Cerebrovascular accident [Recovered/Resolved]
